FAERS Safety Report 24028928 (Version 1)
Quarter: 2024Q2

REPORT INFORMATION
  Report Type: Spontaneous
  Country: CA (occurrence: CA)
  Receive Date: 20240628
  Receipt Date: 20240628
  Transmission Date: 20240716
  Serious: Yes (Other)
  Sender: FDA-Public Use
  Company Number: CA-002147023-NVSC2024CA132985

PATIENT
  Age: 79 Year
  Sex: Female

DRUGS (1)
  1. TRILEPTAL [Suspect]
     Active Substance: OXCARBAZEPINE
     Indication: Post herpetic neuralgia
     Dosage: UNK
     Route: 065

REACTIONS (3)
  - Atrial fibrillation [Unknown]
  - Bradycardia [Unknown]
  - Hyponatraemia [Unknown]
